FAERS Safety Report 18154791 (Version 1)
Quarter: 2020Q3

REPORT INFORMATION
  Report Type: Spontaneous
  Country: US (occurrence: US)
  Receive Date: 20200817
  Receipt Date: 20200817
  Transmission Date: 20201103
  Serious: No
  Sender: FDA-Public Use
  Company Number: NVSC2020US220809

PATIENT
  Age: 72 Year
  Sex: Female

DRUGS (1)
  1. SIPONIMOD [Suspect]
     Active Substance: SIPONIMOD
     Indication: PRODUCT USED FOR UNKNOWN INDICATION
     Route: 065

REACTIONS (7)
  - Muscle spasticity [Unknown]
  - Osteoarthritis [Unknown]
  - Expanded disability status scale [Unknown]
  - Fatigue [Unknown]
  - Depression [Unknown]
  - Osteoporosis [Unknown]
  - Cognitive disorder [Unknown]
